FAERS Safety Report 7618061-5 (Version None)
Quarter: 2011Q3

REPORT INFORMATION
  Report Type: 
  Country: None (occurrence: None)
  Receive Date: 20110718
  Receipt Date: 20110714
  Transmission Date: 20111222
  Serious: Yes (Disabling, Other)
  Sender: FDA-Public Use
  Company Number: AU-PFIZER INC-2011161173

PATIENT
  Age: 73 Year
  Sex: Female
  Weight: 80 kg

DRUGS (1)
  1. VARENICLINE TARTRATE [Suspect]
     Indication: SMOKING CESSATION THERAPY
     Dosage: 2 DOSE UNSPECIFIED, 2 TIMES
     Route: 048
     Dates: start: 20110325, end: 20110326

REACTIONS (2)
  - NIGHTMARE [None]
  - RIB FRACTURE [None]
